FAERS Safety Report 23138986 (Version 1)
Quarter: 2023Q4

REPORT INFORMATION
  Report Type: Spontaneous
  Country: US (occurrence: US)
  Receive Date: 20231102
  Receipt Date: 20231102
  Transmission Date: 20240109
  Serious: Yes (Other)
  Sender: FDA-Public Use
  Company Number: US-BRAINTREE LABORATORIES, INC.-2023BTE00736

PATIENT
  Age: 47 Year
  Sex: Female
  Weight: 34.921 kg

DRUGS (5)
  1. SUTAB [Suspect]
     Active Substance: MAGNESIUM SULFATE\POTASSIUM CHLORIDE\SODIUM SULFATE
     Indication: Colonoscopy
     Dosage: 1 X 18 TABLETS, 1X
     Route: 048
     Dates: start: 20231018, end: 20231019
  2. HYDROCODONE [Concomitant]
     Active Substance: HYDROCODONE
  3. VITAMIN D NOS [Concomitant]
     Active Substance: VITAMIN D NOS
  4. ADDERALL [Concomitant]
     Active Substance: AMPHETAMINE ASPARTATE\AMPHETAMINE SULFATE\DEXTROAMPHETAMINE SACCHARATE\DEXTROAMPHETAMINE SULFATE
  5. FLONASE [Concomitant]
     Active Substance: FLUTICASONE PROPIONATE

REACTIONS (17)
  - Aspiration [Recovering/Resolving]
  - Gastritis erosive [Unknown]
  - Dizziness [Recovered/Resolved]
  - Abdominal pain [Recovering/Resolving]
  - Hypertension [Recovered/Resolved]
  - Breath sounds abnormal [Recovering/Resolving]
  - Disorientation [Unknown]
  - Tremor [Recovered/Resolved]
  - Hyperhidrosis [Recovered/Resolved]
  - Productive cough [Not Recovered/Not Resolved]
  - Muscle strain [Unknown]
  - Back pain [Unknown]
  - Diaphragmalgia [Unknown]
  - Pain in jaw [Unknown]
  - Neck pain [Unknown]
  - Abdominal distension [Recovering/Resolving]
  - Vomiting projectile [Recovered/Resolved]

NARRATIVE: CASE EVENT DATE: 20231001
